FAERS Safety Report 15700567 (Version 1)
Quarter: 2018Q4

REPORT INFORMATION
  Report Type: Spontaneous
  Country: US (occurrence: US)
  Receive Date: 20181207
  Receipt Date: 20181207
  Transmission Date: 20190205
  Serious: Yes (Death, Other)
  Sender: FDA-Public Use
  Company Number: US-TESAROUBC-2018-TSO1936-US

PATIENT
  Age: 70 Year
  Sex: Female
  Weight: 63.6 kg

DRUGS (1)
  1. ZEJULA [Suspect]
     Active Substance: NIRAPARIB
     Indication: OVARIAN CANCER
     Dosage: 100 MG, QD
     Route: 048
     Dates: start: 20180402, end: 201807

REACTIONS (2)
  - Hospice care [Unknown]
  - Ovarian cancer [Fatal]

NARRATIVE: CASE EVENT DATE: 201807
